FAERS Safety Report 5458119-2 (Version None)
Quarter: 2007Q3

REPORT INFORMATION
  Report Type: 
  Country: None (occurrence: None)
  Receive Date: 20070917
  Receipt Date: 20070904
  Transmission Date: 20080115
  Serious: Yes (Life-Threatening)
  Sender: FDA-Public Use
  Company Number: 2007-02925

PATIENT
  Age: 53 Year
  Sex: Male

DRUGS (5)
  1. VELCADE [Suspect]
     Indication: MULTIPLE MYELOMA
  2. MELPHALAN(MELPHALAN) VIAL [Suspect]
     Indication: MULTIPLE MYELOMA
     Dates: start: 20060901
  3. VINCRISTINE [Suspect]
     Indication: MULTIPLE MYELOMA
     Dates: start: 20060529
  4. DOXORUBICIN HCL [Suspect]
     Indication: MULTIPLE MYELOMA
     Dates: start: 20060529
  5. DEXAMETHASONE [Suspect]
     Indication: MULTIPLE MYELOMA
     Dates: start: 20060529

REACTIONS (13)
  - AGRANULOCYTOSIS [None]
  - APLASIA [None]
  - BLOOD CULTURE POSITIVE [None]
  - DISEASE PROGRESSION [None]
  - MUCOSAL INFLAMMATION [None]
  - ORAL HERPES [None]
  - PSEUDOMONAS INFECTION [None]
  - SEPTIC SHOCK [None]
  - STAPHYLOCOCCAL INFECTION [None]
  - STEM CELL TRANSPLANT [None]
  - THROMBOCYTOPENIA [None]
  - TRANSPLANT [None]
  - WHITE BLOOD CELL COUNT DECREASED [None]
